FAERS Safety Report 16050951 (Version 2)
Quarter: 2019Q2

REPORT INFORMATION
  Report Type: Spontaneous
  Country: US (occurrence: US)
  Receive Date: 20190308
  Receipt Date: 20190419
  Transmission Date: 20190711
  Serious: No
  Sender: FDA-Public Use
  Company Number: US-BAUSCH-BL-2019-006205

PATIENT
  Age: 76 Year
  Sex: Male
  Weight: 70.37 kg

DRUGS (1)
  1. BEPREVE [Suspect]
     Active Substance: BEPOTASTINE BESILATE
     Indication: EYE PRURITUS
     Dosage: IN BOTH EYES
     Route: 047
     Dates: start: 20190222

REACTIONS (1)
  - Drug ineffective [Unknown]

NARRATIVE: CASE EVENT DATE: 20190222
